FAERS Safety Report 6020956-3 (Version None)
Quarter: 2008Q4

REPORT INFORMATION
  Report Type: 
  Country: None (occurrence: None)
  Receive Date: 20081224
  Receipt Date: 20081224
  Transmission Date: 20090506
  Serious: Yes (Hospitalization)
  Sender: FDA-Public Use
  Company Number: None

PATIENT
  Age: 17 Year
  Sex: Male
  Weight: 115.6672 kg

DRUGS (3)
  1. PROACTIV 2.5% BENZOYL PEROXIDE RODAN + FIELDS [Suspect]
     Indication: ACNE
     Dosage: APPLIED TO FACE WITH PAD 1X AT NIGHT
     Dates: start: 20081215, end: 20081217
  2. PROACTIV 2.5% BENZOYL PEROXIDE RODAN + FIELDS [Suspect]
     Indication: ACNE
     Dosage: APPLIED TO FACE WITH PAD 1X AT NIGHT
     Dates: start: 20081216, end: 20081222
  3. PROACTIV 2.5% BENZOYL PEROXIDE RODAN + FIELDS [Suspect]

REACTIONS (10)
  - APHASIA [None]
  - CHEST DISCOMFORT [None]
  - DIZZINESS [None]
  - FALL [None]
  - HYPOAESTHESIA [None]
  - HYPOTENSION [None]
  - NAUSEA [None]
  - SYNCOPE [None]
  - TINNITUS [None]
  - VISION BLURRED [None]
